FAERS Safety Report 20904755 (Version 4)
Quarter: 2022Q3

REPORT INFORMATION
  Report Type: Report from Study
  Country: CN (occurrence: CN)
  Receive Date: 20220602
  Receipt Date: 20220718
  Transmission Date: 20221027
  Serious: Yes (Hospitalization)
  Sender: FDA-Public Use
  Company Number: CN-ADC THERAPEUTICS-ADC-2022-000093

PATIENT
  Age: 64 Year
  Sex: Female

DRUGS (4)
  1. LONCASTUXIMAB TESIRINE [Suspect]
     Active Substance: LONCASTUXIMAB TESIRINE
     Indication: Diffuse large B-cell lymphoma
     Dosage: 150 MICROGRAM/KILOGRAM, Q3WK
     Route: 042
     Dates: start: 20220308, end: 20220329
  2. LONCASTUXIMAB TESIRINE [Suspect]
     Active Substance: LONCASTUXIMAB TESIRINE
     Dosage: 75 MICROGRAM/KILOGRAM, Q3WK
     Route: 042
     Dates: start: 20220425, end: 20220425
  3. LONCASTUXIMAB TESIRINE [Suspect]
     Active Substance: LONCASTUXIMAB TESIRINE
     Dosage: 75 MICROGRAM/KILOGRAM, Q3WK
     Route: 042
     Dates: start: 20220601, end: 20220601
  4. LONCASTUXIMAB TESIRINE [Suspect]
     Active Substance: LONCASTUXIMAB TESIRINE
     Dosage: 37.5 MICROGRAM/KILOGRAM, Q3WK
     Route: 042
     Dates: start: 20220705

REACTIONS (6)
  - Platelet count decreased [Recovered/Resolved]
  - Neutrophil count decreased [Recovered/Resolved]
  - Platelet count decreased [Recovering/Resolving]
  - Neutrophil count decreased [Recovered/Resolved]
  - Neutrophil count decreased [Recovered/Resolved]
  - Neutrophil count decreased [Recovered/Resolved]

NARRATIVE: CASE EVENT DATE: 20220518
